FAERS Safety Report 7328850-2 (Version None)
Quarter: 2011Q1

REPORT INFORMATION
  Report Type: 
  Country: None (occurrence: None)
  Receive Date: 20110303
  Receipt Date: 20110217
  Transmission Date: 20110831
  Serious: Yes (Other)
  Sender: FDA-Public Use
  Company Number: US-ROCHE-761855

PATIENT
  Sex: Male
  Weight: 52.6 kg

DRUGS (1)
  1. ACCUTANE [Suspect]
     Indication: ACNE
     Route: 048
     Dates: start: 19950101

REACTIONS (6)
  - SUICIDE ATTEMPT [None]
  - ERECTILE DYSFUNCTION [None]
  - CROHN'S DISEASE [None]
  - DEPRESSION [None]
  - VASCULAR RUPTURE [None]
  - DIARRHOEA [None]
